FAERS Safety Report 8165609 (Version 3)
Quarter: 2013Q1

REPORT INFORMATION
  Report Type: Report from Study
  Country: GB (occurrence: GB)
  Receive Date: 20111003
  Receipt Date: 20130213
  Transmission Date: 20140127
  Serious: Yes (Death, Life-Threatening)
  Sender: FDA-Public Use
  Company Number: GB-CELGENEUS-167-C5013-11021731

PATIENT
  Age: 77 Year
  Sex: Male
  Weight: 66.6 kg

DRUGS (23)
  1. THALIDOMIDE [Suspect]
     Indication: PLASMA CELL MYELOMA
     Dosage: 100 MILLIGRAM
     Route: 048
     Dates: start: 20090204, end: 20090916
  2. THALIDOMIDE [Suspect]
     Route: 048
     Dates: start: 20090916, end: 20091111
  3. MELPHALAN [Suspect]
     Indication: PLASMA CELL MYELOMA
     Dosage: 18 MILLIGRAM
     Route: 065
     Dates: start: 20090204, end: 20090916
  4. MELPHALAN [Suspect]
     Route: 048
     Dates: start: 20090916, end: 20091111
  5. PREDNISONE [Suspect]
     Indication: PLASMA CELL MYELOMA
     Dosage: 175 MILLIGRAM
     Route: 065
     Dates: start: 20090204, end: 20090916
  6. PREDNISONE [Suspect]
     Dosage: 40 MILLIGRAM
     Route: 048
     Dates: start: 20090916, end: 20091111
  7. VELCADE [Suspect]
     Indication: PLASMA CELL MYELOMA RECURRENT
     Dosage: .1429 MILLIGRAM
     Route: 065
     Dates: start: 20100908, end: 20101124
  8. DEXAMETHASONE [Suspect]
     Indication: PLASMA CELL MYELOMA RECURRENT
     Dosage: 20 MILLIGRAM
     Route: 065
     Dates: start: 20100908, end: 20101124
  9. PREDNISOLONE [Concomitant]
     Indication: PLASMA CELL MYELOMA
     Route: 065
     Dates: start: 20090916, end: 20091111
  10. HYDROXOCOBALAMIN [Concomitant]
     Indication: VITAMIN B12 DEFICIENCY
     Route: 058
     Dates: start: 20080819
  11. ZOLEDRONATE [Concomitant]
     Indication: OSTEOLYSIS
     Dosage: .1333 MILLIGRAM
     Route: 041
     Dates: start: 20081203
  12. CO-CODAMOL [Concomitant]
     Indication: PAIN
     Route: 048
  13. CLEXANE [Concomitant]
     Indication: THROMBOSIS PROPHYLAXIS
     Dosage: 40 MILLIGRAM
     Route: 058
     Dates: start: 20090204
  14. DOMPERIDONE [Concomitant]
     Indication: PROPHYLAXIS
     Dosage: 10 MILLIGRAM
     Route: 048
     Dates: start: 20090204
  15. OMEPRAZOLE [Concomitant]
     Indication: GASTRITIS PROPHYLAXIS
     Dosage: 40 MILLIGRAM
     Route: 048
     Dates: start: 20090204
  16. SENNA [Concomitant]
     Indication: CONSTIPATION
     Dosage: 2 TABLET
     Route: 048
     Dates: start: 20090303
  17. ADCAL [Concomitant]
     Indication: PROPHYLAXIS
     Dosage: 1 TABLET
     Route: 048
     Dates: start: 20081203
  18. G-CSF [Concomitant]
     Indication: NEUTROPENIA
     Dosage: 75.1429 MICROGRAM
     Route: 048
     Dates: start: 20090930
  19. PENTAMADINE [Concomitant]
     Indication: PROPHYLAXIS
     Dosage: 10 MILLIGRAM
     Route: 055
     Dates: start: 20090318
  20. SALBUTAMOL [Concomitant]
     Indication: PROPHYLAXIS
     Dosage: .0833 MILLIGRAM
     Route: 055
     Dates: start: 20090318
  21. MAGNESIUM HYDROXIDE [Concomitant]
     Indication: CONSTIPATION
     Route: 048
     Dates: start: 20090408
  22. MOVICOL [Concomitant]
     Indication: CONSTIPATION
     Route: 048
     Dates: start: 20090408
  23. IBRUGEL [Concomitant]
     Indication: ARTHRITIS
     Route: 061
     Dates: start: 20090804

REACTIONS (2)
  - Acute myeloid leukaemia [Fatal]
  - Neutropenic sepsis [Fatal]
